FAERS Safety Report 6818095-4 (Version None)
Quarter: 2010Q3

REPORT INFORMATION
  Report Type: 
  Country: None (occurrence: None)
  Receive Date: 20100706
  Receipt Date: 20100623
  Transmission Date: 20110219
  Serious: Yes (Death)
  Sender: FDA-Public Use
  Company Number: CN-GENENTECH-303559

PATIENT
  Age: 53 Year
  Sex: Male

DRUGS (13)
  1. MABTHERA [Suspect]
     Indication: DIFFUSE LARGE B-CELL LYMPHOMA
     Dosage: 600 MG, 1/WEEK
     Route: 065
     Dates: start: 20010801
  2. MABTHERA [Suspect]
     Dosage: 600 MG, 1/MONTH
     Route: 065
     Dates: start: 20020101, end: 20020401
  3. CYCLOPHOSPHAMIDE [Suspect]
     Indication: DIFFUSE LARGE B-CELL LYMPHOMA
     Dosage: UNK
     Route: 065
     Dates: start: 20010801
  4. DOXORUBICIN HCL [Suspect]
     Indication: DIFFUSE LARGE B-CELL LYMPHOMA
     Dosage: UNK
     Route: 065
     Dates: start: 20010801
  5. VINCRISTINE [Suspect]
     Indication: DIFFUSE LARGE B-CELL LYMPHOMA
     Dosage: UNK
     Route: 065
     Dates: start: 20010801
  6. PREDNISONE [Suspect]
     Indication: DIFFUSE LARGE B-CELL LYMPHOMA
     Dosage: UNK
     Route: 065
     Dates: start: 20010801
  7. ETOPOSIDE [Concomitant]
     Indication: DIFFUSE LARGE B-CELL LYMPHOMA
     Dosage: UNK
     Dates: start: 20021001
  8. ETOPOSIDE [Concomitant]
     Dosage: UNK
     Dates: start: 20030101
  9. CYTARABINE [Concomitant]
     Indication: DIFFUSE LARGE B-CELL LYMPHOMA
     Dosage: UNK
     Dates: start: 20021001
  10. CYTARABINE [Concomitant]
     Dosage: UNK
     Dates: start: 20030101
  11. DEXAMETHASONE [Concomitant]
     Indication: DIFFUSE LARGE B-CELL LYMPHOMA
     Dosage: UNK
     Dates: start: 20021001
  12. DEXAMETHASONE [Concomitant]
     Dosage: UNK
     Dates: start: 20030101
  13. ZADAXIN [Concomitant]
     Indication: PRODUCT USED FOR UNKNOWN INDICATION
     Dosage: 1.6 MG, 2/WEEK
     Route: 058
     Dates: start: 20010101, end: 20030101

REACTIONS (3)
  - HEPATIC ENCEPHALOPATHY [None]
  - HEPATITIS B [None]
  - LIVER INJURY [None]
